FAERS Safety Report 6763490-5 (Version None)
Quarter: 2010Q2

REPORT INFORMATION
  Report Type: 
  Country: None (occurrence: None)
  Receive Date: 20100610
  Receipt Date: 20100608
  Transmission Date: 20101027
  Serious: Yes (Life-Threatening)
  Sender: FDA-Public Use
  Company Number: JP-SANOFI-AVENTIS-2010SA032901

PATIENT
  Age: 70 Year
  Sex: Female
  Weight: 40.8 kg

DRUGS (11)
  1. PLAVIX [Suspect]
     Indication: ANGINA UNSTABLE
     Route: 048
     Dates: start: 20090204
  2. ASPIRIN [Concomitant]
     Indication: ANGINA UNSTABLE
     Route: 048
     Dates: start: 20070127
  3. SAWACILLIN [Concomitant]
     Route: 048
     Dates: start: 20090203, end: 20090205
  4. ARTIST [Concomitant]
     Route: 048
  5. LASIX [Concomitant]
     Route: 048
  6. TAKEPRON [Concomitant]
     Route: 048
  7. SIGMART [Concomitant]
     Indication: ANGINA UNSTABLE
     Route: 048
  8. SELBEX [Concomitant]
     Route: 048
  9. LIPITOR [Concomitant]
     Route: 048
  10. NU-LOTAN [Concomitant]
     Route: 048
  11. ALL OTHER THERAPEUTIC PRODUCTS [Concomitant]
     Indication: ANGINA UNSTABLE
     Route: 062

REACTIONS (1)
  - ARTERIAL RUPTURE [None]
